FAERS Safety Report 8816511 (Version 1)
Quarter: 2012Q4

REPORT INFORMATION
  Report Type: Spontaneous
  Country: DK (occurrence: None)
  Receive Date: 20120927
  Receipt Date: 20120927
  Transmission Date: 20130627
  Serious: Yes (Other)
  Sender: FDA-Public Use
  Company Number: 2012MA011547

PATIENT
  Age: 69 Year
  Sex: Female

DRUGS (7)
  1. PACLITAXEL [Suspect]
     Indication: UTERINE CANCER
     Route: 042
     Dates: start: 20120808, end: 20120823
  2. DIAZEMULS [Concomitant]
  3. GRANISETRON KABI [Concomitant]
  4. DECADRON [Concomitant]
  5. TRIMETON [Concomitant]
  6. ZANTAC [Concomitant]
  7. CISPLATINO SANDOZ [Concomitant]

REACTIONS (4)
  - Respiratory arrest [None]
  - Dyspnoea [None]
  - Cyanosis [None]
  - Trismus [None]
